FAERS Safety Report 7911974-6 (Version None)
Quarter: 2011Q4

REPORT INFORMATION
  Report Type: 
  Country: None (occurrence: None)
  Receive Date: 20111114
  Receipt Date: 20111109
  Transmission Date: 20120403
  Serious: Yes (Life-Threatening, Other)
  Sender: FDA-Public Use
  Company Number: GB-JNJFOC-20111010879

PATIENT
  Age: 39 Year
  Sex: Female
  Weight: 89 kg

DRUGS (7)
  1. LANSOPRAZOLE [Concomitant]
     Route: 048
  2. AMITRIPTYLINE HCL [Concomitant]
     Route: 048
  3. ADCAL-D3 [Concomitant]
     Route: 065
  4. GABAPENTIN [Concomitant]
     Route: 048
  5. OXYCODONE HCL [Concomitant]
     Route: 065
  6. REMICADE [Suspect]
     Indication: CROHN'S DISEASE
     Route: 042
     Dates: start: 20111006, end: 20111006
  7. CITALOPRAM HYDROBROMIDE [Concomitant]
     Route: 048

REACTIONS (7)
  - WHEEZING [None]
  - FLUSHING [None]
  - ERYTHEMA [None]
  - CHEST DISCOMFORT [None]
  - THROAT TIGHTNESS [None]
  - URTICARIA [None]
  - PRURITUS [None]
